FAERS Safety Report 12138789 (Version 2)
Quarter: 2017Q4

REPORT INFORMATION
  Report Type: Spontaneous
  Country: US (occurrence: US)
  Receive Date: 20160302
  Receipt Date: 20171221
  Transmission Date: 20180320
  Serious: Yes (Life-Threatening, Hospitalization, Other)
  Sender: FDA-Public Use
  Company Number: US-GLAXOSMITHKLINE-US2016GSK030501

PATIENT
  Age: 16 Year
  Sex: Female

DRUGS (2)
  1. POLYETHYLENE GLYCOL [Concomitant]
     Active Substance: POLYETHYLENE GLYCOLS
  2. BUPROPION. [Suspect]
     Active Substance: BUPROPION
     Indication: DEPRESSION
     Dosage: 60 DF, SINGLE
     Route: 065

REACTIONS (17)
  - Seizure [Recovered/Resolved]
  - Status epilepticus [Recovered/Resolved]
  - Leukocytosis [Recovered/Resolved]
  - Compartment syndrome [Unknown]
  - Tachycardia [Recovered/Resolved]
  - Rhabdomyolysis [Unknown]
  - Generalised tonic-clonic seizure [Recovered/Resolved]
  - Bradycardia [Recovered/Resolved]
  - Pulseless electrical activity [Recovered/Resolved]
  - Intentional overdose [Unknown]
  - Cardiogenic shock [Recovered/Resolved]
  - Toxicity to various agents [Recovered/Resolved]
  - Pupil fixed [Unknown]
  - Mydriasis [Recovered/Resolved]
  - Cardiomyopathy [Recovered/Resolved]
  - Blood creatine phosphokinase increased [Unknown]
  - Cardiac arrest [Recovered/Resolved]
